FAERS Safety Report 4982553-8 (Version None)
Quarter: 2006Q2

REPORT INFORMATION
  Report Type: 
  Country: None (occurrence: None)
  Receive Date: 20060421
  Receipt Date: 20060406
  Transmission Date: 20061013
  Serious: Yes (Other)
  Sender: FDA-Public Use
  Company Number: 2006S1002143

PATIENT
  Age: 52 Year
  Sex: Female

DRUGS (3)
  1. HYDROCHLOROTHIAZIDE/TRIAMTERENE (75 MG) [Suspect]
     Indication: HYPERTENSION
     Dosage: 75 MG QD ORAL
     Route: 048
     Dates: start: 20041015
  2. CARDIZEM CD [Suspect]
     Indication: HYPERTENSION
     Dosage: 300 MG ORAL
     Route: 048
     Dates: start: 20021122, end: 20050923
  3. LEVOTHYROXINE SODIUM [Concomitant]

REACTIONS (9)
  - ABDOMINAL DISTENSION [None]
  - ANAEMIA [None]
  - BLOOD PRESSURE INADEQUATELY CONTROLLED [None]
  - CHANGE OF BOWEL HABIT [None]
  - DRUG INEFFECTIVE [None]
  - HAEMANGIOMA OF LIVER [None]
  - HEPATIC CYST [None]
  - HEPATIC ENZYME INCREASED [None]
  - LIBIDO DECREASED [None]
